FAERS Safety Report 22075719 (Version 1)
Quarter: 2023Q1

REPORT INFORMATION
  Report Type: Spontaneous
  Country: US (occurrence: US)
  Receive Date: 20230308
  Receipt Date: 20230308
  Transmission Date: 20230418
  Serious: No
  Sender: FDA-Public Use
  Company Number: US-TEVA-2023-US-2859392

PATIENT
  Age: 81 Year
  Sex: Male

DRUGS (6)
  1. CLONAZEPAM [Interacting]
     Active Substance: CLONAZEPAM
     Indication: Anxiety
     Dosage: 3 MILLIGRAM DAILY; 3 TABLETS A DAY ;ONE TABLET IN THE MORNING AND 2 TABLETS AT NIGHT
     Route: 065
     Dates: start: 1982
  2. CLONAZEPAM [Interacting]
     Active Substance: CLONAZEPAM
     Indication: Depression
     Dosage: 4 MILLIGRAM DAILY; 4 TABLETS DAILY
     Route: 065
  3. ALCOHOL [Interacting]
     Active Substance: ALCOHOL
     Indication: Product used for unknown indication
     Route: 065
  4. PAXIL [Concomitant]
     Active Substance: PAROXETINE HYDROCHLORIDE
     Indication: Anxiety
     Dates: start: 1982, end: 1983
  5. PAXIL [Concomitant]
     Active Substance: PAROXETINE HYDROCHLORIDE
     Indication: Depression
  6. VALIUM [Concomitant]
     Active Substance: DIAZEPAM
     Indication: Product used for unknown indication

REACTIONS (6)
  - COVID-19 [Unknown]
  - Tremor [Unknown]
  - Yawning [Unknown]
  - Labelled drug-drug interaction issue [Unknown]
  - Product prescribing issue [Unknown]
  - Product dose omission issue [Unknown]

NARRATIVE: CASE EVENT DATE: 19820101
